FAERS Safety Report 11628516 (Version 2)
Quarter: 2015Q4

REPORT INFORMATION
  Report Type: Spontaneous
  Country: BG (occurrence: BG)
  Receive Date: 20151014
  Receipt Date: 20151016
  Transmission Date: 20160304
  Serious: Yes (Death, Hospitalization)
  Sender: FDA-Public Use
  Company Number: BG-ASTRAZENECA-2015SE98671

PATIENT
  Sex: Male
  Weight: 100 kg

DRUGS (6)
  1. BRILIQUE [Suspect]
     Active Substance: TICAGRELOR
     Indication: ANGINA UNSTABLE
     Route: 048
     Dates: start: 20150501, end: 20150920
  2. ZOFEN [Concomitant]
     Active Substance: IBUPROFEN
  3. ROSUVASTATIN [Concomitant]
     Active Substance: ROSUVASTATIN
  4. PANTOPRAZOLE [Concomitant]
     Active Substance: PANTOPRAZOLE SODIUM
  5. ACETYLSALICYLIC ACID [Concomitant]
     Active Substance: ASPIRIN
  6. TRIFAS COR [Concomitant]

REACTIONS (5)
  - Gastritis erosive [Fatal]
  - Angina unstable [Unknown]
  - Haemorrhagic anaemia [Fatal]
  - Tachypnoea [Unknown]
  - Shock haemorrhagic [Fatal]
